FAERS Safety Report 8000133-7 (Version None)
Quarter: 2011Q4

REPORT INFORMATION
  Report Type: 
  Country: None (occurrence: None)
  Receive Date: 20111220
  Receipt Date: 20111220
  Transmission Date: 20120403
  Serious: No
  Sender: FDA-Public Use
  Company Number: None

PATIENT

DRUGS (1)
  1. COLGATE TOOTHPASTE, BAKING SODA AND PEROXIDE WHITNING [Suspect]
     Indication: DENTAL DISORDER PROPHYLAXIS
     Dosage: USED 1 TOOTHBURSH
     Route: 048
     Dates: start: 20100913, end: 20100913

REACTIONS (2)
  - DYSGEUSIA [None]
  - PRODUCT COUNTERFEIT [None]
